FAERS Safety Report 7900512-X (Version None)
Quarter: 2011Q4

REPORT INFORMATION
  Report Type: 
  Country: None (occurrence: None)
  Receive Date: 20111108
  Receipt Date: 20111028
  Transmission Date: 20120403
  Serious: Yes (Other)
  Sender: FDA-Public Use
  Company Number: US-BRISTOL-MYERS SQUIBB COMPANY-16203861

PATIENT

DRUGS (2)
  1. METHOTREXATE [Suspect]
  2. ORENCIA [Suspect]

REACTIONS (1)
  - PANCREATITIS [None]
